FAERS Safety Report 5703915-7 (Version None)
Quarter: 2008Q2

REPORT INFORMATION
  Report Type: 
  Country: None (occurrence: None)
  Receive Date: 20080409
  Receipt Date: 20080326
  Transmission Date: 20081010
  Serious: Yes (Hospitalization, Other)
  Sender: FDA-Public Use
  Company Number: FEI2008-0600

PATIENT
  Age: 30 Year
  Sex: Female
  Weight: 72.5755 kg

DRUGS (2)
  1. PARAGARD T 380A [Suspect]
     Indication: CONTRACEPTION
     Dosage: INTRA-UTERINE
     Route: 015
     Dates: start: 20070401, end: 20070701
  2. HYDROCHLOROTHIAZIDE [Concomitant]

REACTIONS (7)
  - HAEMATOMA [None]
  - INFERTILITY [None]
  - PELVIC INFLAMMATORY DISEASE [None]
  - PURULENCE [None]
  - PYREXIA [None]
  - RUPTURED ECTOPIC PREGNANCY [None]
  - VAGINAL HAEMORRHAGE [None]
